FAERS Safety Report 4524589-7 (Version None)
Quarter: 2004Q4

REPORT INFORMATION
  Report Type: 
  Country: None (occurrence: None)
  Receive Date: 20041117
  Receipt Date: 20040730
  Transmission Date: 20050328
  Serious: Yes (Hospitalization)
  Sender: FDA-Public Use
  Company Number: DE-JNJFOC-20040800581

PATIENT
  Age: 70 Year
  Sex: Female

DRUGS (17)
  1. LEVOFLOXACIN [Suspect]
     Indication: PNEUMONIA
     Dosage: ORAL
     Route: 048
     Dates: start: 20030724, end: 20030728
  2. LEVOFLOXACIN [Suspect]
     Indication: PNEUMONIA
     Dosage: INTRAVENOUS
     Route: 042
     Dates: start: 20030719, end: 20030723
  3. KCL (POTASSIUM CHLORIDE) [Concomitant]
  4. FOLIC ACID [Concomitant]
  5. NORVASC [Concomitant]
  6. LISINOPRIL [Concomitant]
  7. ZYRTEC [Concomitant]
  8. ZOLOFT [Concomitant]
  9. ZOCOR [Concomitant]
  10. GUAIFENESIN (GUAIFENESIN) [Concomitant]
  11. LASIX [Concomitant]
  12. XANAX [Concomitant]
  13. THEO-DUR [Concomitant]
  14. QUESTRAN [Concomitant]
  15. AMITRIPTYLINE HCL [Concomitant]
  16. FLONASE [Concomitant]
  17. BACID (LACTOBACILLUS ACIDOPHILUS) [Concomitant]

REACTIONS (1)
  - CHRONIC OBSTRUCTIVE AIRWAYS DISEASE EXACERBATED [None]
